FAERS Safety Report 4965888-4 (Version None)
Quarter: 2006Q2

REPORT INFORMATION
  Report Type: 
  Country: None (occurrence: None)
  Receive Date: 20060406
  Receipt Date: 20060406
  Transmission Date: 20061013
  Serious: Yes (Hospitalization)
  Sender: FDA-Public Use
  Company Number: None

PATIENT
  Sex: Male
  Weight: 52 kg

DRUGS (8)
  1. RAPAMYCIN [Suspect]
     Dosage: 5 MG PO DAILY 28 DAYS
     Dates: start: 20051114
  2. PROTONIX [Concomitant]
  3. LIPITOR [Concomitant]
  4. ATENOLOL [Concomitant]
  5. AVANDIA [Concomitant]
  6. CLONOPIN [Concomitant]
  7. LAMICTAL [Concomitant]
  8. CYMBALTA [Concomitant]

REACTIONS (6)
  - COLITIS [None]
  - DEHYDRATION [None]
  - ENTERITIS [None]
  - FAILURE TO THRIVE [None]
  - GASTROINTESTINAL HAEMORRHAGE [None]
  - HYPERGLYCAEMIA [None]
